FAERS Safety Report 7962409-9 (Version None)
Quarter: 2011Q4

REPORT INFORMATION
  Report Type: 
  Country: None (occurrence: None)
  Receive Date: 20111207
  Receipt Date: 20111205
  Transmission Date: 20120403
  Serious: Yes (Hospitalization, Other)
  Sender: FDA-Public Use
  Company Number: US-PFIZER INC-2011144289

PATIENT
  Sex: Male
  Weight: 82.993 kg

DRUGS (15)
  1. CHANTIX [Suspect]
     Dosage: 0.5 MG, 2X/DAY
     Route: 048
     Dates: start: 20110601, end: 20110624
  2. CHANTIX [Suspect]
     Dosage: UNK
     Route: 048
     Dates: end: 20111101
  3. METFORMIN [Concomitant]
     Indication: DIABETES MELLITUS
     Dosage: UNK
  4. LAMOTRIGINE [Concomitant]
     Dosage: UNK
  5. FOLIC ACID [Concomitant]
     Dosage: UNK
  6. CHANTIX [Suspect]
     Indication: SMOKING CESSATION THERAPY
     Dosage: 0.5 MG, 1X/DAY
     Route: 048
     Dates: start: 20110601, end: 20110601
  7. LORAZEPAM [Concomitant]
     Dosage: UNK
  8. SIMVASTATIN [Concomitant]
     Dosage: UNK
  9. COMBIVIR [Concomitant]
     Dosage: UNK
  10. TAMSULOSIN [Concomitant]
     Dosage: UNK
  11. GLIPIZIDE [Concomitant]
     Indication: DIABETES MELLITUS
     Dosage: UNK
  12. BENAZEPRIL [Concomitant]
     Indication: HYPERTENSION
     Dosage: 10 MG, DAILY
  13. IPRATROPIUM [Concomitant]
     Dosage: UNK
  14. FLUOXETINE [Concomitant]
     Dosage: UNK
  15. NEXIUM [Concomitant]
     Dosage: UNK

REACTIONS (2)
  - CHEST PAIN [None]
  - OROPHARYNGEAL BLISTERING [None]
